FAERS Safety Report 12529828 (Version 1)
Quarter: 2016Q3

REPORT INFORMATION
  Report Type: Spontaneous
  Country: US (occurrence: US)
  Receive Date: 20160706
  Receipt Date: 20160706
  Transmission Date: 20161109
  Serious: Yes (Other)
  Sender: FDA-Public Use
  Company Number: US-CIPLA LTD.-2016US08005

PATIENT

DRUGS (2)
  1. CARBOPLATIN. [Suspect]
     Active Substance: CARBOPLATIN
     Indication: GLIOMA
     Dosage: 140 MG/M2, ONCE WEEKLY NFOR 3 WEEKS IN EACH 6 WEEK CYCLE
     Route: 042
  2. VINBLASTINE [Suspect]
     Active Substance: VINBLASTINE
     Indication: GLIOMA
     Dosage: UNK, ONCE WEEKLY FOR 6 WEEKS
     Route: 042

REACTIONS (2)
  - Nail infection [Unknown]
  - Neutropenia [Unknown]
